FAERS Safety Report 8087416-X (Version None)
Quarter: 2012Q1

REPORT INFORMATION
  Report Type: 
  Country: None (occurrence: None)
  Receive Date: 20120128
  Receipt Date: 20110513
  Transmission Date: 20120608
  Serious: No
  Sender: FDA-Public Use
  Company Number: US-ABBOTT-11P-163-0724333-00

PATIENT
  Sex: Male
  Weight: 99.88 kg

DRUGS (7)
  1. HUMIRA [Suspect]
     Indication: PSORIASIS
     Route: 058
     Dates: start: 20060501, end: 20110401
  2. TRILEPTAL [Concomitant]
     Indication: PRODUCT USED FOR UNKNOWN INDICATION
  3. MULTI-VITAMIN [Concomitant]
     Indication: PRODUCT USED FOR UNKNOWN INDICATION
  4. ASPIRIN [Concomitant]
     Indication: PRODUCT USED FOR UNKNOWN INDICATION
     Dates: start: 20110101
  5. HUMIRA [Suspect]
     Indication: PSORIATIC ARTHROPATHY
  6. LAMICTAL [Concomitant]
     Indication: PRODUCT USED FOR UNKNOWN INDICATION
  7. GEODON [Concomitant]
     Indication: PRODUCT USED FOR UNKNOWN INDICATION

REACTIONS (11)
  - VIITH NERVE PARALYSIS [None]
  - VISION BLURRED [None]
  - DISORIENTATION [None]
  - OPTIC NERVE DISORDER [None]
  - SOMNOLENCE [None]
  - SLEEP APNOEA SYNDROME [None]
  - DYSARTHRIA [None]
  - DYSKINESIA [None]
  - DEMYELINATION [None]
  - CENTRAL NERVOUS SYSTEM LESION [None]
  - SNORING [None]
